FAERS Safety Report 9463096 (Version 2)
Quarter: 2013Q3

REPORT INFORMATION
  Report Type: Spontaneous
  Country: US (occurrence: US)
  Receive Date: 20130816
  Receipt Date: 20130823
  Transmission Date: 20140515
  Serious: Yes (Other)
  Sender: FDA-Public Use
  Company Number: CHPA2013US012884

PATIENT
  Age: 95 Year
  Sex: Male

DRUGS (2)
  1. VOLTAREN EMULGEL [Suspect]
     Dosage: UNK, QD
  2. VOLTAREN GEL [Suspect]
     Indication: ARTHRALGIA
     Dosage: UNK, QD
     Dates: start: 20130726, end: 20130811

REACTIONS (7)
  - Dementia [Not Recovered/Not Resolved]
  - Skin lesion [Recovering/Resolving]
  - Skin haemorrhage [Recovering/Resolving]
  - Rash [Recovering/Resolving]
  - Off label use [Unknown]
  - Incorrect drug administration duration [Unknown]
  - Drug dispensing error [Unknown]
